FAERS Safety Report 6155422-8 (Version None)
Quarter: 2009Q2

REPORT INFORMATION
  Report Type: 
  Country: None (occurrence: None)
  Receive Date: 20090415
  Receipt Date: 20090408
  Transmission Date: 20091009
  Serious: Yes (Other)
  Sender: FDA-Public Use
  Company Number: DE-ROXANE LABORATORIES, INC.-2009-RO-00358RO

PATIENT
  Age: 62 Year
  Sex: Female

DRUGS (13)
  1. CLARITHROMYCIN [Suspect]
     Indication: HELICOBACTER GASTRITIS
  2. LIDOCAINE [Suspect]
     Indication: TENOSYNOVITIS
     Route: 058
  3. PANTOPRAZOLE SODIUM [Suspect]
     Indication: HELICOBACTER GASTRITIS
  4. AMOXICILLIN [Suspect]
     Indication: HELICOBACTER GASTRITIS
  5. ENALAPRIL [Concomitant]
  6. OLMESARTAN [Concomitant]
  7. LEVOTHYROXINE SODIUM [Concomitant]
     Indication: BASEDOW'S DISEASE
  8. SIMVASTATIN [Concomitant]
  9. NITROSPRAY [Concomitant]
  10. PREDNISOLONE [Concomitant]
     Indication: GASTRITIS
     Dosage: 20MG
  11. PREDNISOLONE [Concomitant]
     Dosage: 7.5MG
  12. ESOMEPRAZOLE [Concomitant]
     Indication: NAUSEA
  13. ESOMEPRAZOLE [Concomitant]
     Indication: ABDOMINAL PAIN

REACTIONS (2)
  - GASTRITIS [None]
  - RASH [None]
